FAERS Safety Report 21740009 (Version 1)
Quarter: 2022Q4

REPORT INFORMATION
  Report Type: Spontaneous
  Country: US (occurrence: US)
  Receive Date: 20221216
  Receipt Date: 20221216
  Transmission Date: 20230113
  Serious: No
  Sender: FDA-Public Use
  Company Number: US-REGENERON PHARMACEUTICALS, INC.-2022-080730

PATIENT
  Sex: Female

DRUGS (1)
  1. EYLEA [Suspect]
     Active Substance: AFLIBERCEPT
     Indication: Eye oedema
     Dosage: ONCE A MONTH, IN LEFT EYE; FORMULATION: INJECTION
     Route: 031

REACTIONS (3)
  - Off label use [Unknown]
  - Eye pain [Unknown]
  - Vitreous floaters [Unknown]
